FAERS Safety Report 21659847 (Version 1)
Quarter: 2022Q4

REPORT INFORMATION
  Report Type: Spontaneous
  Country: US (occurrence: US)
  Receive Date: 20221130
  Receipt Date: 20221130
  Transmission Date: 20230112
  Serious: Yes (Other)
  Sender: FDA-Public Use
  Company Number: US-PADAGIS-2022PAD01079

PATIENT

DRUGS (1)
  1. TESTOSTERONE CYPIONATE [Suspect]
     Active Substance: TESTOSTERONE CYPIONATE
     Indication: Transgender hormonal therapy
     Dosage: UNK (TESTOSTERONE THERAPY AND WAS ON THIS FOR 20 MONTHS)
     Route: 065

REACTIONS (2)
  - Idiopathic intracranial hypertension [None]
  - Product use in unapproved indication [Unknown]
